FAERS Safety Report 16760786 (Version 1)
Quarter: 2019Q4

REPORT INFORMATION
  Report Type: Spontaneous
  Country: US (occurrence: US)
  Receive Date: 20190830
  Receipt Date: 20190830
  Transmission Date: 20200122
  Serious: Yes (Disabling, Other)
  Sender: FDA-Public Use
  Company Number: None

PATIENT
  Age: 55 Year
  Sex: Female
  Weight: 87.75 kg

DRUGS (9)
  1. HYDROCORTISONE. [Concomitant]
     Active Substance: HYDROCORTISONE
  2. SYNTHROID [Concomitant]
     Active Substance: LEVOTHYROXINE SODIUM
  3. MS CONTIN [Suspect]
     Active Substance: MORPHINE SULFATE
     Indication: ARACHNOIDITIS
     Dates: start: 20090801
  4. OXYCODONE [Concomitant]
     Active Substance: OXYCODONE
  5. TUMERIC [Concomitant]
     Active Substance: HERBALS\TURMERIC
  6. MULTI VITAMIN [Concomitant]
     Active Substance: VITAMINS
  7. MS CONTIN [Suspect]
     Active Substance: MORPHINE SULFATE
     Indication: COMPLEX REGIONAL PAIN SYNDROME
     Dates: start: 20090801
  8. VITAMIN D [Concomitant]
     Active Substance: VITAMIN D NOS
  9. MS CONTIN [Concomitant]
     Active Substance: MORPHINE SULFATE

REACTIONS (9)
  - Suicidal ideation [None]
  - Pain [None]
  - Gait disturbance [None]
  - Loss of personal independence in daily activities [None]
  - Bedridden [None]
  - Fear of falling [None]
  - Intentional product use issue [None]
  - Feeling of despair [None]
  - Patient dissatisfaction with treatment [None]

NARRATIVE: CASE EVENT DATE: 20180801
